FAERS Safety Report 4294526-1 (Version None)
Quarter: 2004Q1

REPORT INFORMATION
  Report Type: 
  Country: None (occurrence: None)
  Receive Date: 20040211
  Receipt Date: 20040121
  Transmission Date: 20041129
  Serious: Yes (Hospitalization)
  Sender: FDA-Public Use
  Company Number: US_040199814

PATIENT
  Age: 67 Year
  Sex: Male
  Weight: 59 kg

DRUGS (10)
  1. TADALAFIL [Suspect]
     Indication: ERECTILE DYSFUNCTION
     Dosage: 20 MG/DAY
     Dates: start: 20031013, end: 20040102
  2. IMIDAPRIL [Concomitant]
  3. AMOXICILLIN [Concomitant]
  4. PARACETAMOL [Concomitant]
  5. PHENYLPROPANOLAMINE HCL [Concomitant]
  6. PARACETAMOL [Concomitant]
  7. VASCOR (BEPRIDIL HYDROCHLORIDE MONOHYDRATE) [Concomitant]
  8. NEOZEP [Concomitant]
  9. BIOGESIC [Concomitant]
  10. DOLONEURO-GEL [Concomitant]

REACTIONS (4)
  - CEREBROVASCULAR ACCIDENT [None]
  - CHEST PAIN [None]
  - HYPOAESTHESIA [None]
  - TRANSIENT ISCHAEMIC ATTACK [None]
